FAERS Safety Report 11004503 (Version 2)
Quarter: 2015Q3

REPORT INFORMATION
  Report Type: Spontaneous
  Country: CH (occurrence: CH)
  Receive Date: 20150409
  Receipt Date: 20150918
  Transmission Date: 20151125
  Serious: Yes (Hospitalization)
  Sender: FDA-Public Use
  Company Number: CH-ASTRAZENECA-2014SE97235

PATIENT
  Age: 22492 Day
  Sex: Male

DRUGS (6)
  1. CLEXANE [Concomitant]
     Active Substance: ENOXAPARIN SODIUM
     Route: 065
  2. PANTOZOL [Concomitant]
     Active Substance: PANTOPRAZOLE SODIUM
     Route: 065
  3. CAPRELSA [Suspect]
     Active Substance: VANDETANIB
     Indication: THYROID CANCER METASTATIC
     Route: 048
     Dates: start: 20141015, end: 20141105
  4. BACTRIM [Suspect]
     Active Substance: SULFAMETHOXAZOLE\TRIMETHOPRIM
     Indication: URINARY TRACT INFECTION
     Dosage: 800/160 MG
     Route: 065
     Dates: start: 20141024, end: 20141028
  5. CAPRELSA [Suspect]
     Active Substance: VANDETANIB
     Indication: THYROID CANCER METASTATIC
     Route: 048
  6. BACTRIM [Suspect]
     Active Substance: SULFAMETHOXAZOLE\TRIMETHOPRIM
     Indication: URINARY TRACT INFECTION
     Route: 065

REACTIONS (7)
  - Biopsy skin abnormal [Recovering/Resolving]
  - Photosensitivity reaction [Recovered/Resolved]
  - Dermatitis bullous [Recovering/Resolving]
  - Conjunctivitis [Unknown]
  - Skin necrosis [Recovering/Resolving]
  - Skin exfoliation [Recovering/Resolving]
  - Superinfection bacterial [Unknown]

NARRATIVE: CASE EVENT DATE: 20141101
